FAERS Safety Report 10479973 (Version 1)
Quarter: 2014Q3

REPORT INFORMATION
  Report Type: Report from Study
  Country: US (occurrence: US)
  Receive Date: 20140929
  Receipt Date: 20140929
  Transmission Date: 20150326
  Serious: Yes (Other)
  Sender: FDA-Public Use
  Company Number: US-ROCHE-1467429

PATIENT
  Age: 8 Year
  Sex: Male
  Weight: 23.4 kg

DRUGS (3)
  1. BACTRIM [Concomitant]
     Active Substance: SULFAMETHOXAZOLE\TRIMETHOPRIM
     Route: 048
  2. NUTROPIN AQ [Suspect]
     Active Substance: SOMATROPIN
     Indication: GROWTH HORMONE DEFICIENCY
     Route: 058
     Dates: end: 20131001
  3. NUTROPIN AQ [Suspect]
     Active Substance: SOMATROPIN
     Indication: BODY HEIGHT BELOW NORMAL
     Route: 058

REACTIONS (4)
  - Pineal gland cyst [Unknown]
  - Cardiac murmur [Unknown]
  - Inappropriate affect [Unknown]
  - Weight increased [Unknown]

NARRATIVE: CASE EVENT DATE: 201208
